FAERS Safety Report 8060174-0 (Version None)
Quarter: 2012Q1

REPORT INFORMATION
  Report Type: 
  Country: None (occurrence: None)
  Receive Date: 20120120
  Receipt Date: 20120109
  Transmission Date: 20120608
  Serious: Yes (Other)
  Sender: FDA-Public Use
  Company Number: US-ROCHE-1031207

PATIENT

DRUGS (2)
  1. ARGATROBAN [Suspect]
     Indication: ISCHAEMIC STROKE
     Route: 042
  2. ALTEPLASE [Suspect]
     Indication: ISCHAEMIC STROKE
     Route: 042

REACTIONS (1)
  - HYPOKALAEMIA [None]
